FAERS Safety Report 8230734-2 (Version None)
Quarter: 2012Q1

REPORT INFORMATION
  Report Type: 
  Country: None (occurrence: None)
  Receive Date: 20120322
  Receipt Date: 20120322
  Transmission Date: 20120608
  Serious: Yes (Hospitalization)
  Sender: FDA-Public Use
  Company Number: None

PATIENT
  Sex: Male

DRUGS (1)
  1. RIBAVIRIN [Suspect]
     Indication: HEPATITIS C
     Dosage: 600MG AM (HAD BEEN DECR TO 400MG) + 400MG PM ORALLY
     Route: 048
     Dates: start: 20111101, end: 20120305

REACTIONS (1)
  - TRANSFUSION [None]
